FAERS Safety Report 10006547 (Version 8)
Quarter: 2018Q1

REPORT INFORMATION
  Report Type: Spontaneous
  Country: US (occurrence: US)
  Receive Date: 20140313
  Receipt Date: 20180209
  Transmission Date: 20180508
  Serious: Yes (Hospitalization, Other)
  Sender: FDA-Public Use
  Company Number: US-BAYER-2014-035909

PATIENT
  Age: 36 Year
  Sex: Female
  Weight: 90.7 kg

DRUGS (12)
  1. EPIPEN [Concomitant]
     Active Substance: EPINEPHRINE
     Dosage: UNK
     Dates: start: 20120118
  2. KEFLEX [Concomitant]
     Active Substance: CEPHALEXIN
     Dosage: 500 MG, TID
  3. MIRENA [Suspect]
     Active Substance: LEVONORGESTREL
     Dosage: 20 MCG/24HR, CONT
     Route: 015
     Dates: start: 20101220, end: 20120130
  4. EFFEXOR [Concomitant]
     Active Substance: VENLAFAXINE HYDROCHLORIDE
     Dosage: 300 MG, QD
     Route: 048
  5. CYANOCOBALAMIN. [Concomitant]
     Active Substance: CYANOCOBALAMIN
     Dosage: 1000 MCG/24HR, Q1MON
     Dates: start: 20120118
  6. BACTRIM [Concomitant]
     Active Substance: SULFAMETHOXAZOLE\TRIMETHOPRIM
     Indication: EXTERNAL EAR CELLULITIS
     Dosage: UNK
     Route: 048
     Dates: start: 20120120, end: 20120127
  7. VICODIN [Concomitant]
     Active Substance: ACETAMINOPHEN\HYDROCODONE BITARTRATE
     Indication: PAIN
     Dosage: UNK UNK, QID
     Route: 048
  8. TRAZODONE [Concomitant]
     Active Substance: TRAZODONE HYDROCHLORIDE
     Dosage: 100 MG, HS
     Route: 048
     Dates: start: 20120114
  9. PEPCID [Concomitant]
     Active Substance: FAMOTIDINE
     Indication: GASTRITIS
     Route: 048
  10. ALEVE [Concomitant]
     Active Substance: NAPROXEN SODIUM
     Dosage: UNK
     Dates: start: 2013, end: 2014
  11. ESSURE [Suspect]
     Active Substance: DEVICE
     Indication: FEMALE STERILISATION
     Dosage: UNK
     Dates: start: 20120329, end: 20120424
  12. WELLBUTRIN [Concomitant]
     Active Substance: BUPROPION HYDROCHLORIDE
     Dosage: 300 MG, QD
     Route: 048
     Dates: start: 20120118

REACTIONS (30)
  - Abdominal pain lower [Recovered/Resolved]
  - Device dislocation [Unknown]
  - Pelvic pain [Unknown]
  - Ectopic pregnancy with contraceptive device [Recovered/Resolved]
  - Genital haemorrhage [Unknown]
  - Ruptured ectopic pregnancy [Recovered/Resolved]
  - Pain [Unknown]
  - Migraine [Unknown]
  - Medical device monitoring error [Unknown]
  - Dizziness [Unknown]
  - Immunodeficiency [Unknown]
  - Weight increased [Unknown]
  - Haemorrhage in pregnancy [Unknown]
  - Weight decreased [Unknown]
  - Tachycardia [Unknown]
  - Menorrhagia [Unknown]
  - Fatigue [Unknown]
  - Depression [Unknown]
  - Subcutaneous abscess [Unknown]
  - Foreign body in reproductive tract [Unknown]
  - Drug ineffective [Unknown]
  - Nausea [Recovered/Resolved]
  - Autoimmune disorder [Unknown]
  - Cardio-respiratory arrest [Unknown]
  - Palpitations [Unknown]
  - Vaginal haemorrhage [Recovered/Resolved]
  - Investigation noncompliance [Unknown]
  - Abdominal pain [Recovered/Resolved]
  - Patient-device incompatibility [Unknown]
  - Dysmenorrhoea [Unknown]

NARRATIVE: CASE EVENT DATE: 20120329
